FAERS Safety Report 6542295-4 (Version None)
Quarter: 2010Q1

REPORT INFORMATION
  Report Type: 
  Country: None (occurrence: None)
  Receive Date: 20100119
  Receipt Date: 20100113
  Transmission Date: 20100710
  Serious: Yes (Disabling)
  Sender: FDA-Public Use
  Company Number: US-MERCK-1001USA01176

PATIENT
  Sex: Male

DRUGS (5)
  1. PRINIVIL [Suspect]
     Route: 048
  2. CARDIZEM [Concomitant]
     Route: 065
  3. ZOCOR [Concomitant]
     Route: 048
  4. PRAVACHOL [Concomitant]
     Route: 065
  5. NAPROSYN [Concomitant]
     Route: 065

REACTIONS (6)
  - ARTHROPATHY [None]
  - DIZZINESS [None]
  - MUSCLE DISORDER [None]
  - MUSCLE SPASTICITY [None]
  - NIGHTMARE [None]
  - OEDEMA PERIPHERAL [None]
